FAERS Safety Report 22645624 (Version 1)
Quarter: 2023Q2

REPORT INFORMATION
  Report Type: Spontaneous
  Country: CH (occurrence: CH)
  Receive Date: 20230627
  Receipt Date: 20230627
  Transmission Date: 20230722
  Serious: Yes (Other)
  Sender: FDA-Public Use
  Company Number: None

PATIENT
  Age: 64 Year
  Sex: Male

DRUGS (56)
  1. VIMPAT [Suspect]
     Active Substance: LACOSAMIDE
     Indication: Product used for unknown indication
     Dosage: 100 MILLIGRAM, 2X/DAY (BID)
     Route: 048
     Dates: start: 20230512, end: 20230517
  2. LEVETIRACETAM [Suspect]
     Active Substance: LEVETIRACETAM
     Indication: Encephalitis
     Dosage: 3000 MILLIGRAM
     Dates: start: 20230330
  3. LEVETIRACETAM [Suspect]
     Active Substance: LEVETIRACETAM
     Dosage: 1000 MILLIGRAM
     Route: 048
     Dates: start: 20230511, end: 20230517
  4. LEVETIRACETAM [Suspect]
     Active Substance: LEVETIRACETAM
     Dosage: 500 MILLIGRAM
     Route: 048
     Dates: start: 20230511, end: 20230517
  5. AMOXICILLIN\CLAVULANATE POTASSIUM [Suspect]
     Active Substance: AMOXICILLIN\CLAVULANATE POTASSIUM
     Indication: Encephalitis
     Dosage: UNK
     Dates: start: 20230422, end: 20230427
  6. BACTRIM [Suspect]
     Active Substance: SULFAMETHOXAZOLE\TRIMETHOPRIM
     Indication: Encephalitis
     Dosage: UNK
     Dates: start: 20230411
  7. PHENYTOIN [Suspect]
     Active Substance: PHENYTOIN
     Indication: Encephalitis
     Dosage: UNK
     Dates: start: 20230402
  8. PHENYTOIN [Suspect]
     Active Substance: PHENYTOIN
     Dosage: DOSE WAS INCREASED
     Dates: start: 20230423
  9. PHENYTOIN [Suspect]
     Active Substance: PHENYTOIN
     Dosage: 600 MILLIGRAM
     Dates: start: 20230424
  10. PHENYTOIN [Suspect]
     Active Substance: PHENYTOIN
     Dosage: 26.8 MILLILITER,  IF THIS WAS A UNIQUE INTAKE OR NOT
     Dates: start: 20230511
  11. PHENYTOIN [Suspect]
     Active Substance: PHENYTOIN
     Dosage: 29.2 MILLILITER,  IT IS NOT KNOWN IF THIS WAS A UNIQUE INTAKE OR NOT.
     Dates: start: 20230512
  12. PHENYTOIN [Suspect]
     Active Substance: PHENYTOIN
     Dosage: 29.2 MILLILITER,  IT IS NOT KNOWN IF THIS WAS A UNIQUE INTAKE OR NOT.
     Dates: start: 20230517
  13. DAFALGAN [Suspect]
     Active Substance: ACETAMINOPHEN
     Indication: Product used for unknown indication
     Dosage: UNK
     Route: 048
  14. DAFALGAN [Suspect]
     Active Substance: ACETAMINOPHEN
     Dosage: 1 GRAM, OCCASIONALLY
     Route: 048
  15. METAMIZOLE [Suspect]
     Active Substance: METAMIZOLE
     Indication: Pneumonia
     Dosage: OCCASIONALLY, INDICATION: PNEUMONIA/INDICATION IN THIS CASE FEVER
     Route: 048
  16. METAMIZOLE [Suspect]
     Active Substance: METAMIZOLE
     Indication: Pyrexia
     Dosage: OCCASIONALLY, NO INDICATION STATED//INDICATION IN THIS CASE FEVER
     Route: 048
  17. ACYCLOVIR [Suspect]
     Active Substance: ACYCLOVIR
     Indication: Pneumonia
     Dosage: UNK
     Dates: start: 20230401, end: 20230404
  18. ROCEPHIN [Suspect]
     Active Substance: CEFTRIAXONE SODIUM
     Indication: Pneumonia
     Dates: start: 20230401, end: 20230404
  19. BENSERAZIDE HYDROCHLORIDE\LEVODOPA [Suspect]
     Active Substance: BENSERAZIDE HYDROCHLORIDE\LEVODOPA
     Indication: Product used for unknown indication
     Dosage: 125 MILLIGRAM
     Route: 048
     Dates: start: 20230512, end: 20230517
  20. ENOXAPARIN SODIUM [Suspect]
     Active Substance: ENOXAPARIN SODIUM
     Indication: Product used for unknown indication
     Dates: start: 20230512, end: 20230517
  21. DOMPERIDONE [Suspect]
     Active Substance: DOMPERIDONE
     Indication: Product used for unknown indication
     Dosage: OCCASIONALLY
     Route: 048
  22. METOPROLOL [Suspect]
     Active Substance: METOPROLOL
     Indication: Product used for unknown indication
     Dosage: OCCASIONALLY
  23. FYCOMPA [Suspect]
     Active Substance: PERAMPANEL
     Indication: Product used for unknown indication
     Dosage: 16 MILLILITER 0.5MG/1ML
     Dates: start: 20230514, end: 20230517
  24. HEPARIN [Suspect]
     Active Substance: HEPARIN SODIUM
     Indication: Pneumonia
     Dosage: UNK
  25. NEXIUM [Suspect]
     Active Substance: ESOMEPRAZOLE MAGNESIUM
     Indication: Product used for unknown indication
     Dosage: 40 MILLIGRAM, ONCE DAILY (QD)
     Route: 048
     Dates: start: 20230511
  26. LACOSAMIDE [Concomitant]
     Active Substance: LACOSAMIDE
     Indication: Product used for unknown indication
     Dosage: UNK
     Dates: start: 20230331, end: 20230403
  27. DEXAMETHASONE [Concomitant]
     Active Substance: DEXAMETHASONE
     Indication: Encephalitis
     Dosage: 10 MILLIGRAM
     Dates: start: 20230403
  28. SOLU-MEDROL [Concomitant]
     Active Substance: METHYLPREDNISOLONE SODIUM SUCCINATE
     Indication: Encephalitis
     Dosage: 1 GRAM
     Dates: start: 20230404, end: 20230411
  29. SOLU-MEDROL [Concomitant]
     Active Substance: METHYLPREDNISOLONE SODIUM SUCCINATE
     Indication: Pneumonia
     Dosage: 1 GRAM, CURRENTLY DOSE IS 80 MG DAILY
     Dates: start: 202304, end: 20230409
  30. SOLU-MEDROL [Concomitant]
     Active Substance: METHYLPREDNISOLONE SODIUM SUCCINATE
     Dosage: 125 MILLIGRAM, CONTINUING THERAPY
     Dates: start: 20230412
  31. TOPIRAMATE [Concomitant]
     Active Substance: TOPIRAMATE
     Indication: Encephalitis
     Dosage: UNK
     Dates: start: 20230403
  32. TOPIRAMATE [Concomitant]
     Active Substance: TOPIRAMATE
     Dosage: 600 MILLIGRAM, DOSE INCREASED
     Dates: start: 20230423
  33. TOPIRAMATE [Concomitant]
     Active Substance: TOPIRAMATE
     Dosage: 100 MILLIGRAM
     Route: 048
     Dates: start: 20230511, end: 20230517
  34. PERAMPANEL [Concomitant]
     Active Substance: PERAMPANEL
     Indication: Encephalitis
     Dosage: 8 MILLIGRAM, ONCE DAILY (QD)
     Dates: start: 20230331
  35. FLUDROCORTISONE [Concomitant]
     Active Substance: FLUDROCORTISONE
     Indication: Encephalitis
     Dosage: 0.1 MILLIGRAM
  36. FENTANYL [Concomitant]
     Active Substance: FENTANYL
     Indication: Encephalitis
     Dosage: OCCASIONALLY
     Route: 040
  37. URAPIDIL [Concomitant]
     Active Substance: URAPIDIL
     Indication: Encephalitis
     Dosage: OCCASIONALLY
  38. AMOXICILLIN [Concomitant]
     Active Substance: AMOXICILLIN
     Indication: Pneumonia
     Dosage: UNK
     Dates: start: 20230401, end: 20230404
  39. ACETAMINOPHEN [Concomitant]
     Active Substance: ACETAMINOPHEN
     Indication: Pneumonia
     Dosage: 2 GRAM/1 DAY
  40. INSULIN NOS [Concomitant]
     Active Substance: INSULIN NOS
     Indication: Pneumonia
     Dosage: UNK
  41. PROPOFOL [Concomitant]
     Active Substance: PROPOFOL
     Indication: Product used for unknown indication
     Dosage: UNK
     Dates: end: 20230421
  42. CLONAZEPAM [Concomitant]
     Active Substance: CLONAZEPAM
     Indication: Product used for unknown indication
     Dosage: UNK
     Dates: start: 20230421
  43. PIPERACILLIN SODIUM\TAZOBACTAM SODIUM [Concomitant]
     Active Substance: PIPERACILLIN SODIUM\TAZOBACTAM SODIUM
     Indication: Product used for unknown indication
     Dosage: UNK
     Dates: start: 20230420, end: 20230422
  44. CEFTRIAXONE [Concomitant]
     Active Substance: CEFTRIAXONE
     Indication: Product used for unknown indication
     Dates: start: 20230402, end: 20230404
  45. DEXAMETHASONE [Concomitant]
     Active Substance: DEXAMETHASONE
     Indication: Product used for unknown indication
     Dosage: 40 MILLIGRAM
     Dates: start: 20230403, end: 20230404
  46. CALCIMAGON D3 FORTE [Concomitant]
     Indication: Product used for unknown indication
     Dosage: 1000 MILLIGRAM/1 DAY
     Route: 048
  47. PREDNISOLONE [Concomitant]
     Active Substance: PREDNISOLONE
     Indication: Product used for unknown indication
     Dosage: 50 MILLIGRAM
     Route: 048
     Dates: start: 20230513, end: 20230517
  48. SODIUM PICOSULFATE [Concomitant]
     Active Substance: SODIUM PICOSULFATE
     Indication: Product used for unknown indication
     Dosage: 15 GTT DROPS
     Dates: start: 20230515, end: 20230517
  49. ISOSOURCE PROTEIN [Concomitant]
     Indication: Product used for unknown indication
     Dosage: UNK
  50. HYALURONATE SODIUM [Concomitant]
     Active Substance: HYALURONATE SODIUM
     Indication: Product used for unknown indication
     Dosage: 4 GTT DROPS, UNCLEAR IF THERAPY CONTINUED OR NOT
     Dates: start: 20230517
  51. LAXIPEG [Concomitant]
     Indication: Product used for unknown indication
     Dosage: 10 GRAM, OCCASIONALLY
     Route: 048
  52. MIDAZOLAM [Concomitant]
     Active Substance: MIDAZOLAM
     Indication: Product used for unknown indication
     Dosage: OCCASIONALLY
  53. VALVERDE SCHLAF [Concomitant]
     Indication: Product used for unknown indication
     Dosage: OCCASIONALLY
  54. PRONTOLAX [BISACODYL] [Concomitant]
     Indication: Product used for unknown indication
     Dosage: 10 MILLIGRAM, OCCASSIONALLY
  55. MICROLAX MACROGOL [Concomitant]
     Indication: Product used for unknown indication
     Dosage: OCCASIONALLY
  56. MORPHINE HYDROCHLORIDE [Concomitant]
     Active Substance: MORPHINE HYDROCHLORIDE
     Indication: Product used for unknown indication
     Dosage: UNK
     Dates: end: 20230421

REACTIONS (2)
  - Drug-induced liver injury [Recovering/Resolving]
  - Liver function test abnormal [Recovering/Resolving]

NARRATIVE: CASE EVENT DATE: 20230425
